FAERS Safety Report 8489123-8 (Version None)
Quarter: 2012Q3

REPORT INFORMATION
  Report Type: 
  Country: None (occurrence: None)
  Receive Date: 20120705
  Receipt Date: 20120626
  Transmission Date: 20120928
  Serious: Yes (Hospitalization)
  Sender: FDA-Public Use
  Company Number: JP-ASTRAZENECA-2012SE42912

PATIENT
  Age: 21394 Day
  Sex: Male

DRUGS (11)
  1. AZD6140 [Suspect]
     Indication: ACUTE CORONARY SYNDROME
     Route: 048
     Dates: start: 20110610, end: 20120607
  2. ASPIRIN [Suspect]
     Route: 048
     Dates: start: 20110611
  3. RABEPRAZOLE SODIUM [Suspect]
     Indication: GASTROOESOPHAGEAL REFLUX DISEASE
     Route: 048
     Dates: end: 20110610
  4. CRESTOR [Suspect]
     Indication: PROPHYLAXIS
     Route: 048
     Dates: start: 20111206
  5. MAGLAX [Suspect]
     Indication: CONSTIPATION
     Route: 048
     Dates: start: 20110616, end: 20110620
  6. PLACEBO [Suspect]
     Indication: ACUTE CORONARY SYNDROME
     Dosage: DAILY
     Route: 048
     Dates: start: 20110610, end: 20120607
  7. ASPIRIN [Suspect]
     Indication: ACUTE CORONARY SYNDROME
     Route: 048
     Dates: start: 20110610, end: 20110610
  8. MAGLAX [Suspect]
     Dosage: AS REQUIRED
     Route: 048
     Dates: start: 20110626
  9. KARY UNI [Suspect]
     Indication: CATARACT
     Dosage: 4 DROPS DAILY
     Route: 047
  10. RABEPRAZOLE SODIUM [Suspect]
     Route: 048
     Dates: start: 20110623
  11. PLAVIX [Suspect]
     Route: 048
     Dates: start: 20110610, end: 20110610

REACTIONS (1)
  - PLEURISY [None]
